FAERS Safety Report 7975218-1 (Version None)
Quarter: 2011Q4

REPORT INFORMATION
  Report Type: 
  Country: None (occurrence: None)
  Receive Date: 20111213
  Receipt Date: 20110922
  Transmission Date: 20120403
  Serious: No
  Sender: FDA-Public Use
  Company Number: US-AMGEN-USASP2011049149

PATIENT
  Age: 57 Year
  Sex: Male

DRUGS (10)
  1. ENBREL [Suspect]
     Indication: PRODUCT USED FOR UNKNOWN INDICATION
     Dosage: 50 MG, QWK
  2. TRILIPIX [Concomitant]
     Dosage: 1 MG, QD
  3. HYDROCHLOROTHIAZIDE [Concomitant]
     Dosage: UNK MG, UNK
  4. VENTOLIN HFA [Concomitant]
     Dosage: 2 MUG, QD
  5. ALLOPURINOL [Concomitant]
     Dosage: 4 MG, QD
  6. CETIRIZINE HCL [Concomitant]
     Dosage: 1 MG, QD
  7. VYTORIN [Concomitant]
     Dosage: 1 MG, QD
  8. OMEPRAZOLE [Concomitant]
     Dosage: 1 MG, QD
  9. DICLOFENAC SODIUM [Concomitant]
     Dosage: 1 MG, QD
  10. SPIRIVA [Concomitant]
     Dosage: 1 MUG, QD

REACTIONS (3)
  - ERYTHEMA [None]
  - SINUSITIS [None]
  - DERMATITIS CONTACT [None]
